FAERS Safety Report 8479057-7 (Version None)
Quarter: 2012Q2

REPORT INFORMATION
  Report Type: 
  Country: None (occurrence: None)
  Receive Date: 20120629
  Receipt Date: 20120622
  Transmission Date: 20120825
  Serious: Yes (Other)
  Sender: FDA-Public Use
  Company Number: US-JNJFOC-20110703745

PATIENT
  Sex: Female
  Weight: 52.16 kg

DRUGS (8)
  1. FORTICAL [Concomitant]
     Indication: BONE DISORDER
     Route: 045
  2. AMITRIPTYLINE HCL [Concomitant]
     Route: 048
  3. ELMIRON [Suspect]
     Indication: CYSTITIS INTERSTITIAL
     Route: 048
     Dates: start: 19980101
  4. VITAMIN D [Concomitant]
     Indication: VITAMIN SUPPLEMENTATION
     Route: 048
  5. FOSAMAX [Concomitant]
     Indication: BONE DISORDER
     Route: 048
  6. CALCIUM [Concomitant]
     Indication: MINERAL SUPPLEMENTATION
     Route: 048
  7. LEVOTHYROXINE [Concomitant]
     Indication: HYPOTHYROIDISM
     Route: 048
     Dates: start: 19950101
  8. EVISTA [Suspect]
     Indication: OSTEOPOROSIS
     Route: 048
     Dates: end: 20100101

REACTIONS (7)
  - ABNORMAL LOSS OF WEIGHT [None]
  - HYPERSENSITIVITY [None]
  - HYPERTENSION [None]
  - SLEEP DISORDER [None]
  - OSTEOPOROSIS [None]
  - MUSCLE SPASMS [None]
  - FEEDING DISORDER [None]
